FAERS Safety Report 5719902-9 (Version None)
Quarter: 2008Q2

REPORT INFORMATION
  Report Type: 
  Country: None (occurrence: None)
  Receive Date: 20080424
  Receipt Date: 20080414
  Transmission Date: 20081010
  Serious: Yes (Death, Life-Threatening, Hospitalization)
  Sender: FDA-Public Use
  Company Number: 2007002294

PATIENT
  Age: 75 Year
  Sex: Male
  Weight: 73 kg

DRUGS (6)
  1. ERLOTINIB(ERLOTINIB HCL)(TABLET)(ERLOTINIB HCL) [Suspect]
     Indication: NON-SMALL CELL LUNG CANCER
     Dosage: (150 MG,QD),ORAL; 9100 MG, QD), ORAL
     Route: 048
     Dates: start: 20070726, end: 20070905
  2. ERLOTINIB(ERLOTINIB HCL)(TABLET)(ERLOTINIB HCL) [Suspect]
     Indication: NON-SMALL CELL LUNG CANCER
     Dosage: (150 MG,QD),ORAL; 9100 MG, QD), ORAL
     Route: 048
     Dates: start: 20070919, end: 20071021
  3. SU11248 [Suspect]
     Indication: NON-SMALL CELL LUNG CANCER
     Dosage: (37.5 MG,QD),ORAL
     Route: 048
     Dates: start: 20070725, end: 20070905
  4. MAGIC MOUTHWASH [Concomitant]
  5. SULINDAC [Concomitant]
  6. COMBIVENT [Concomitant]

REACTIONS (20)
  - ABSCESS [None]
  - ANAEMIA [None]
  - ANOREXIA [None]
  - ASTHENIA [None]
  - BLOOD CREATININE INCREASED [None]
  - BLOOD PRESSURE DECREASED [None]
  - BRONCHIAL CARCINOMA [None]
  - CARDIO-RESPIRATORY ARREST [None]
  - DEHYDRATION [None]
  - DERMAL CYST [None]
  - DIARRHOEA [None]
  - FAILURE TO THRIVE [None]
  - GASTROINTESTINAL HAEMORRHAGE [None]
  - HYPOVOLAEMIA [None]
  - ILEUS [None]
  - INFECTION [None]
  - MALIGNANT NEOPLASM PROGRESSION [None]
  - OESOPHAGITIS [None]
  - PAIN [None]
  - PROTHROMBIN TIME PROLONGED [None]
